FAERS Safety Report 23295559 (Version 2)
Quarter: 2024Q1

REPORT INFORMATION
  Report Type: Report from Study
  Country: US (occurrence: US)
  Receive Date: 20231214
  Receipt Date: 20240226
  Transmission Date: 20240409
  Serious: Yes (Hospitalization)
  Sender: FDA-Public Use
  Company Number: US-ABBVIE-5536080

PATIENT
  Sex: Female

DRUGS (4)
  1. RINVOQ [Suspect]
     Active Substance: UPADACITINIB
     Indication: Colitis ulcerative
     Route: 048
     Dates: start: 20230531
  2. RINVOQ [Suspect]
     Active Substance: UPADACITINIB
     Indication: Colitis ulcerative
     Dosage: LAST ADMIN: 2023
     Route: 048
     Dates: start: 20230619
  3. RINVOQ [Suspect]
     Active Substance: UPADACITINIB
     Indication: Colitis ulcerative
     Dosage: FORM STRENGTH: 30 MILLIGRAM,?EXTENDED RELEASE
     Route: 048
     Dates: start: 202308, end: 20230914
  4. RINVOQ [Suspect]
     Active Substance: UPADACITINIB
     Indication: Colitis ulcerative
     Dosage: FORM STRENGTH: 30 MILLIGRAM,?EXTENDED RELEASE
     Route: 048
     Dates: start: 20231013

REACTIONS (8)
  - Fluid replacement [Unknown]
  - Anaemia [Unknown]
  - Malabsorption [Unknown]
  - Nausea [Unknown]
  - Therapeutic product effect incomplete [Recovering/Resolving]
  - Vomiting [Unknown]
  - Colitis ulcerative [Recovering/Resolving]
  - Platelet count increased [Unknown]

NARRATIVE: CASE EVENT DATE: 20230101
